FAERS Safety Report 23611831 (Version 1)
Quarter: 2024Q1

REPORT INFORMATION
  Report Type: Report from Study
  Country: GB (occurrence: GB)
  Receive Date: 20240308
  Receipt Date: 20240308
  Transmission Date: 20240410
  Serious: Yes (Other)
  Sender: FDA-Public Use
  Company Number: GB-002147023-NVSC2024GB050491

PATIENT
  Sex: Female

DRUGS (1)
  1. KESIMPTA [Suspect]
     Active Substance: OFATUMUMAB
     Indication: Multiple sclerosis
     Dosage: 20 MG, QW
     Route: 058
     Dates: start: 20231031

REACTIONS (8)
  - Lower respiratory tract infection [Recovered/Resolved]
  - COVID-19 [Recovered/Resolved]
  - Norovirus infection [Recovered/Resolved]
  - Urinary tract infection [Unknown]
  - Blood iron decreased [Unknown]
  - Tonsillitis [Recovered/Resolved]
  - Sinusitis [Recovered/Resolved]
  - Blood immunoglobulin M decreased [Unknown]
